FAERS Safety Report 22262848 (Version 1)
Quarter: 2023Q2

REPORT INFORMATION
  Report Type: Spontaneous
  Country: CN (occurrence: CN)
  Receive Date: 20230428
  Receipt Date: 20230428
  Transmission Date: 20230721
  Serious: Yes (Other)
  Sender: FDA-Public Use
  Company Number: CN-SUN PHARMACEUTICAL INDUSTRIES LTD-2023R1-386459

PATIENT
  Age: 74 Year
  Sex: Male

DRUGS (3)
  1. CARBOPLATIN [Suspect]
     Active Substance: CARBOPLATIN
     Indication: Prostate cancer
     Dosage: UNK (6 CYCLES)
     Route: 065
     Dates: start: 202011
  2. ETOPOSIDE [Suspect]
     Active Substance: ETOPOSIDE
     Indication: Prostate cancer
     Dosage: UNK (6 CYCLES)
     Route: 048
     Dates: start: 202011
  3. ETOPOSIDE [Suspect]
     Active Substance: ETOPOSIDE
     Dosage: UNK (100 MG QD; D1-14, Q3W)
     Route: 048
     Dates: end: 202201

REACTIONS (1)
  - Disease recurrence [Unknown]

NARRATIVE: CASE EVENT DATE: 20220201
